FAERS Safety Report 9912270 (Version 2)
Quarter: 2014Q1

REPORT INFORMATION
  Report Type: Spontaneous
  Country: US (occurrence: US)
  Receive Date: 20140220
  Receipt Date: 20140220
  Transmission Date: 20141002
  Serious: Yes (Hospitalization, Other)
  Sender: FDA-Public Use
  Company Number: US-BIOGENIDEC-2007BI004426

PATIENT
  Age: 53 Year
  Sex: Female

DRUGS (1)
  1. AVONEX [Suspect]
     Indication: MULTIPLE SCLEROSIS
     Route: 030
     Dates: start: 20040322, end: 20070529

REACTIONS (7)
  - Intrathecal pump insertion [Unknown]
  - Drug delivery device implantation [Recovered/Resolved]
  - Sepsis [Recovered/Resolved]
  - Escherichia infection [Recovered/Resolved]
  - Pneumonia [Recovered/Resolved]
  - Abasia [Not Recovered/Not Resolved]
  - General symptom [Not Recovered/Not Resolved]
